FAERS Safety Report 22323403 (Version 8)
Quarter: 2024Q1

REPORT INFORMATION
  Report Type: Other
  Country: US (occurrence: US)
  Receive Date: 20230516
  Receipt Date: 20240311
  Transmission Date: 20240410
  Serious: Yes (Other)
  Sender: FDA-Public Use
  Company Number: US-TRAVERE-2023TVT00079

PATIENT
  Age: 18 Year
  Sex: Female
  Weight: 88.45 kg

DRUGS (10)
  1. FILSPARI [Suspect]
     Active Substance: SPARSENTAN
     Indication: IgA nephropathy
     Route: 048
     Dates: start: 202302
  2. FILSPARI [Suspect]
     Active Substance: SPARSENTAN
     Route: 048
     Dates: start: 202302
  3. FILSPARI [Suspect]
     Active Substance: SPARSENTAN
     Route: 048
     Dates: start: 202303
  4. FILSPARI [Suspect]
     Active Substance: SPARSENTAN
     Route: 048
  5. TARPEYO [Suspect]
     Active Substance: BUDESONIDE
     Indication: Product used for unknown indication
  6. FARXIGA [Concomitant]
     Active Substance: DAPAGLIFLOZIN PROPANEDIOL
  7. Vitamin D3 100000/G Powder [Concomitant]
  8. TYLENOL [Concomitant]
     Active Substance: ACETAMINOPHEN
  9. FERROUS SULFATE [Concomitant]
     Active Substance: FERROUS SULFATE
  10. DAPAGLIFLOZIN [Concomitant]
     Active Substance: DAPAGLIFLOZIN

REACTIONS (11)
  - Renal impairment [Unknown]
  - Peripheral swelling [Recovering/Resolving]
  - Pain [Recovering/Resolving]
  - Fatigue [Unknown]
  - Somnolence [Unknown]
  - Dizziness [Unknown]
  - Glomerular filtration rate decreased [Unknown]
  - Protein S increased [Unknown]
  - Pain in extremity [Unknown]
  - Gastrooesophageal reflux disease [Unknown]
  - Abdominal pain upper [Recovered/Resolved]

NARRATIVE: CASE EVENT DATE: 20230717
